FAERS Safety Report 8550403-9 (Version None)
Quarter: 2012Q3

REPORT INFORMATION
  Report Type: 
  Country: None (occurrence: None)
  Receive Date: 20120718
  Receipt Date: 20120702
  Transmission Date: 20120928
  Serious: Yes (Hospitalization, Other)
  Sender: FDA-Public Use
  Company Number: ADE12-072

PATIENT
  Age: 71 Year
  Sex: Female
  Weight: 70 kg

DRUGS (3)
  1. HEPARIN SODIUM [Suspect]
     Indication: ACUTE MYOCARDIAL INFARCTION
     Dosage: 35, 000 UNITS, ONCE, IV
     Route: 042
     Dates: start: 20120223, end: 20120223
  2. INTEGRILIN [Concomitant]
  3. NITROGLYCERIN [Concomitant]

REACTIONS (7)
  - CONVULSION [None]
  - BLOOD PRESSURE DECREASED [None]
  - VOMITING [None]
  - GASTROINTESTINAL HAEMORRHAGE [None]
  - HAEMATEMESIS [None]
  - CARDIO-RESPIRATORY ARREST [None]
  - OVERDOSE [None]
